FAERS Safety Report 16258026 (Version 2)
Quarter: 2019Q2

REPORT INFORMATION
  Report Type: Spontaneous
  Country: US (occurrence: US)
  Receive Date: 20190430
  Receipt Date: 20190612
  Transmission Date: 20190711
  Serious: Yes (Other)
  Sender: FDA-Public Use
  Company Number: US-FARMAPROD-201904-0603

PATIENT
  Age: 57 Year
  Sex: Female
  Weight: 119 kg

DRUGS (7)
  1. VIGAMOX [Concomitant]
     Active Substance: MOXIFLOXACIN HYDROCHLORIDE
     Indication: CORNEAL EPITHELIUM DEFECT
     Dates: start: 20190401
  2. BLOOD SERUM [Concomitant]
     Indication: DRY EYE
     Dates: start: 2016
  3. OXERVATE [Suspect]
     Active Substance: CENEGERMIN-BKBJ
     Route: 047
     Dates: start: 20190502, end: 20190524
  4. ARTIFICAL TEARS [Concomitant]
     Active Substance: GLYCERIN\HYPROMELLOSE 2910 (15 MPA.S)\POLYETHYLENE GLYCOL 400\PROPYLENE GLYCOL
     Indication: DRY EYE
     Dates: start: 2017
  5. LUBRICANT [Concomitant]
     Active Substance: UNSPECIFIED INGREDIENT
     Indication: DRY EYE
  6. OXERVATE [Suspect]
     Active Substance: CENEGERMIN-BKBJ
     Indication: NEUROTROPHIC KERATOPATHY
     Route: 047
     Dates: start: 20190228, end: 20190403
  7. LUBRICANT [Concomitant]
     Active Substance: UNSPECIFIED INGREDIENT
     Indication: CORNEAL EPITHELIUM DEFECT
     Dates: start: 20190401, end: 20190416

REACTIONS (1)
  - Corneal neovascularisation [Not Recovered/Not Resolved]

NARRATIVE: CASE EVENT DATE: 20190318
